FAERS Safety Report 12967440 (Version 2)
Quarter: 2017Q1

REPORT INFORMATION
  Report Type: Other
  Country: CA (occurrence: CA)
  Receive Date: 20161123
  Receipt Date: 20170316
  Transmission Date: 20170428
  Serious: Yes (Hospitalization)
  Sender: FDA-Public Use
  Company Number: CA-APOTEX-2016AP014655

PATIENT
  Age: 31 Year
  Sex: Female
  Weight: 104 kg

DRUGS (11)
  1. SODIUM ALGINATE W/SODIUM BICARBONATE [Suspect]
     Active Substance: SODIUM ALGINATE\SODIUM BICARBONATE
     Indication: OESOPHAGEAL IRRITATION
  2. CALCIUM CARBONATE W/MAGNESIUM CARBO/00193601/ [Suspect]
     Active Substance: CALCIUM CARBONATE\MAGNESIUM CARBONATE\MAGNESIUM TRISILICATE
     Indication: THROAT IRRITATION
     Route: 065
  3. SODIUM ALGINATE W/SODIUM BICARBONATE [Suspect]
     Active Substance: SODIUM ALGINATE\SODIUM BICARBONATE
     Indication: THROAT IRRITATION
     Route: 065
  4. CALCIUM CARBONATE W/MAGNESIUM CARBO/00193601/ [Suspect]
     Active Substance: CALCIUM CARBONATE\MAGNESIUM CARBONATE\MAGNESIUM TRISILICATE
     Indication: OESOPHAGEAL IRRITATION
  5. APO-SERTRALINE [Suspect]
     Active Substance: SERTRALINE HYDROCHLORIDE
     Indication: DEPRESSION
     Dosage: 100 MG, QD
     Route: 048
  6. ALGINIC ACID W/ALUMINIUM HYDROXIDE//00757701/ [Suspect]
     Active Substance: ALGINIC ACID\ALUMINUM HYDROXIDE\MAGNESIUM CARBONATE
     Indication: THROAT IRRITATION
     Route: 065
  7. APO-SERTRALINE [Suspect]
     Active Substance: SERTRALINE HYDROCHLORIDE
     Indication: ANXIETY
  8. DEXILANT [Suspect]
     Active Substance: DEXLANSOPRAZOLE
     Indication: EPIGASTRIC DISCOMFORT
  9. DEXILANT [Suspect]
     Active Substance: DEXLANSOPRAZOLE
     Indication: THROAT IRRITATION
     Route: 065
  10. DEXILANT [Suspect]
     Active Substance: DEXLANSOPRAZOLE
     Indication: OESOPHAGEAL IRRITATION
  11. ALGINIC ACID W/ALUMINIUM HYDROXIDE//00757701/ [Suspect]
     Active Substance: ALGINIC ACID\ALUMINUM HYDROXIDE\MAGNESIUM CARBONATE
     Indication: OESOPHAGEAL IRRITATION

REACTIONS (2)
  - Condition aggravated [Recovered/Resolved]
  - Drug ineffective [Recovered/Resolved]
